FAERS Safety Report 5454900-4 (Version None)
Quarter: 2007Q3

REPORT INFORMATION
  Report Type: 
  Country: None (occurrence: None)
  Receive Date: 20070917
  Receipt Date: 20061024
  Transmission Date: 20080115
  Serious: Yes (Other)
  Sender: FDA-Public Use
  Company Number: US-ASTRAZENECA-2006UW20531

PATIENT
  Age: 41 Year
  Sex: Male
  Weight: 61.2 kg

DRUGS (4)
  1. SEROQUEL [Suspect]
     Indication: SLEEP DISORDER
     Route: 048
  2. TRAZODONE HCL [Concomitant]
  3. CLONAZEPAM [Concomitant]
  4. AMBIEN [Concomitant]

REACTIONS (1)
  - DYSKINESIA [None]
